FAERS Safety Report 22714968 (Version 3)
Quarter: 2025Q3

REPORT INFORMATION
  Report Type: Spontaneous
  Country: EU (occurrence: EU)
  Receive Date: 20230718
  Receipt Date: 20250707
  Transmission Date: 20251020
  Serious: No
  Sender: ALKEM
  Company Number: EU-ALKEM LABORATORIES LIMITED-FR-ALKEM-2022-05992

PATIENT
  Age: 51 Year
  Sex: Female

DRUGS (6)
  1. DRONABINOL [Suspect]
     Active Substance: DRONABINOL
     Indication: Neuralgia
     Dosage: 10 MILLIGRAM QD (4 CAPSULES DAILY) (SOFT CAPSULE)
     Route: 065
     Dates: start: 20210603
  2. DRONABINOL [Suspect]
     Active Substance: DRONABINOL
     Dosage: 7.5 MILLIGRAM, QD (2.5 MG IN THE MORNING AND 5 MG IN THE EVENING) (SOFT CAPSULE)
     Route: 065
  3. ANAFRANIL [Concomitant]
     Active Substance: CLOMIPRAMINE HYDROCHLORIDE
     Indication: Product used for unknown indication
     Route: 065
  4. Norset 15 [Concomitant]
     Indication: Product used for unknown indication
     Route: 065
  5. Sifrol LP 0.26 [Concomitant]
     Indication: Product used for unknown indication
     Route: 065
  6. Venlafaxine LP 75 [Concomitant]
     Indication: Product used for unknown indication
     Route: 065

REACTIONS (4)
  - Somnolence [Recovered/Resolved]
  - Dizziness [Recovered/Resolved]
  - Product prescribing issue [Unknown]
  - Inappropriate schedule of product administration [Unknown]

NARRATIVE: CASE EVENT DATE: 20220202
